FAERS Safety Report 19163981 (Version 1)
Quarter: 2021Q2

REPORT INFORMATION
  Report Type: Spontaneous
  Country: JP (occurrence: JP)
  Receive Date: 20210421
  Receipt Date: 20210421
  Transmission Date: 20210717
  Serious: Yes (Other)
  Sender: FDA-Public Use
  Company Number: JP-TEVA-2021-JP-1902198

PATIENT
  Age: 86 Year
  Sex: Female

DRUGS (8)
  1. VONOPRAZAN [Interacting]
     Active Substance: VONOPRAZAN
     Indication: PRODUCT USED FOR UNKNOWN INDICATION
     Dosage: 20 MILLIGRAM DAILY;
     Route: 065
  2. DEXAMETHASONE. [Suspect]
     Active Substance: DEXAMETHASONE
     Indication: STOMATITIS
     Route: 048
  3. FOLIC ACID. [Concomitant]
     Active Substance: FOLIC ACID
     Indication: RHEUMATOID ARTHRITIS
     Route: 065
  4. PREDNISOLONE. [Suspect]
     Active Substance: PREDNISOLONE
     Indication: RHEUMATOID ARTHRITIS
     Dosage: 3.5 MILLIGRAM DAILY; STARTED THREE YEARS PRIOR TO PRESENTATION
     Route: 065
  5. REBAMIPIDE [Suspect]
     Active Substance: REBAMIPIDE
     Indication: STOMATITIS
     Route: 065
  6. IGURATIMOD [Suspect]
     Active Substance: IGURATIMOD
     Indication: RHEUMATOID ARTHRITIS
     Dosage: 50 MILLIGRAM DAILY; STARTED TWO YEARS PRIOR TO PRESENTATION
     Route: 065
  7. FLAVIN ADENINE DINUCLEOTIDE [Suspect]
     Active Substance: FLAVIN ADENINE DINUCLEOTIDE
     Indication: STOMATITIS
     Route: 065
  8. METHOTREXATE. [Interacting]
     Active Substance: METHOTREXATE
     Indication: RHEUMATOID ARTHRITIS
     Dosage: STARTED THREE YEARS PRIOR TO PRESENTATION
     Route: 065

REACTIONS (6)
  - Decreased appetite [Recovering/Resolving]
  - Drug ineffective [Unknown]
  - Gastric ulcer [Recovering/Resolving]
  - Stomatitis [Recovered/Resolved]
  - Drug interaction [Unknown]
  - Impaired healing [Recovering/Resolving]
